FAERS Safety Report 5163610-2 (Version None)
Quarter: 2006Q4

REPORT INFORMATION
  Report Type: 
  Country: None (occurrence: None)
  Receive Date: 20061204
  Receipt Date: 20061122
  Transmission Date: 20070319
  Serious: Yes (Hospitalization)
  Sender: FDA-Public Use
  Company Number: DE-JNJFOC-20061105240

PATIENT
  Age: 72 Year
  Sex: Female

DRUGS (9)
  1. REMICADE [Suspect]
     Indication: RHEUMATOID ARTHRITIS
     Dosage: ONCE EVERY 6-8 WEEKS
     Route: 042
  2. HCT [Concomitant]
     Indication: HYPERTENSION
     Route: 048
  3. ACE-INHIBITOR [Concomitant]
     Indication: HYPERTENSION
     Route: 065
  4. HAEMATOPEN [Concomitant]
     Indication: IRON DEFICIENCY ANAEMIA
     Route: 048
  5. VOLTAREN [Concomitant]
     Indication: RHEUMATOID ARTHRITIS
     Route: 048
  6. OMEPRAZOLE [Concomitant]
     Indication: PROPHYLAXIS AGAINST GASTROINTESTINAL ULCER
     Route: 048
  7. MADOPAR [Concomitant]
     Indication: RESTLESS LEGS SYNDROME
     Dosage: 100-25 MG
     Route: 048
  8. DECORTIN [Concomitant]
     Indication: RHEUMATOID ARTHRITIS
     Route: 048
  9. IMUREK [Concomitant]
     Indication: RHEUMATOID ARTHRITIS
     Route: 048

REACTIONS (5)
  - HAEMORRHAGIC DIATHESIS [None]
  - LEUKOPENIA [None]
  - MYELOID LEUKAEMIA [None]
  - NIGHT SWEATS [None]
  - WEIGHT DECREASED [None]
